FAERS Safety Report 9926226 (Version 1)
Quarter: 2014Q1

REPORT INFORMATION
  Report Type: Spontaneous
  Country: FR (occurrence: FR)
  Receive Date: 20140226
  Receipt Date: 20140226
  Transmission Date: 20141002
  Serious: Yes (Other)
  Sender: FDA-Public Use
  Company Number: FR-ABBVIE-14P-056-1206346-00

PATIENT
  Age: 19 Year
  Sex: Female

DRUGS (3)
  1. MICROPAKINE [Suspect]
     Indication: EPILEPSY
     Route: 048
     Dates: start: 1997, end: 201210
  2. MICROPAKINE [Suspect]
     Route: 048
     Dates: start: 2013, end: 201309
  3. MICROPAKINE [Suspect]
     Route: 048

REACTIONS (10)
  - Delirium [Recovering/Resolving]
  - Menstruation irregular [Unknown]
  - Overweight [Unknown]
  - Mental disorder [Recovering/Resolving]
  - Hallucination [Unknown]
  - Sleep disorder [Unknown]
  - Incoherent [Unknown]
  - Polycystic ovaries [Not Recovered/Not Resolved]
  - Menstrual disorder [Unknown]
  - Amenorrhoea [Unknown]
